FAERS Safety Report 7102875-4 (Version None)
Quarter: 2010Q4

REPORT INFORMATION
  Report Type: 
  Country: None (occurrence: None)
  Receive Date: 20101115
  Receipt Date: 20101102
  Transmission Date: 20110411
  Serious: Yes (Hospitalization)
  Sender: FDA-Public Use
  Company Number: US-ELI_LILLY_AND_COMPANY-US200910004620

PATIENT
  Sex: Female

DRUGS (16)
  1. FORTEO [Suspect]
     Indication: OSTEOPOROSIS
     Dosage: 20 UG, DAILY (1/D)
     Dates: start: 20090925, end: 20091001
  2. FORTEO [Suspect]
     Dosage: 20 UG, DAILY (1/D)
     Dates: start: 20090101, end: 20091201
  3. FORTEO [Suspect]
     Dosage: 20 UG, DAILY (1/D)
  4. METHOTREXATE [Concomitant]
  5. CYTOTEC [Concomitant]
  6. VITAMIN D [Concomitant]
  7. TYLENOL (CAPLET) [Concomitant]
  8. PREDNISONE [Concomitant]
     Indication: WEIGHT INCREASED
     Dosage: 10 MG, UNKNOWN
  9. COREG [Concomitant]
     Dosage: 1 MG, DAILY (1/D)
  10. ZOCOR [Concomitant]
  11. LASIX [Concomitant]
  12. PROCARDIA [Concomitant]
  13. CELEBREX [Concomitant]
  14. VITAMIN D [Concomitant]
     Dosage: 5000 U, WEEKLY (1/W)
  15. ASPIRIN [Concomitant]
     Dosage: UNK, DAILY (1/D)
  16. ATIVAN [Concomitant]
     Dosage: UNK, 2/D

REACTIONS (4)
  - INTESTINAL OBSTRUCTION [None]
  - NAUSEA [None]
  - PAIN IN EXTREMITY [None]
  - PNEUMONIA [None]
